FAERS Safety Report 9204005 (Version 1)
Quarter: 2013Q1

REPORT INFORMATION
  Report Type: Spontaneous
  Country: US (occurrence: None)
  Receive Date: 20120709
  Receipt Date: 20120709
  Transmission Date: 20140127
  Serious: Yes (Other)
  Sender: FDA-Public Use
  Company Number: PHEH2011US02347

PATIENT
  Sex: Male

DRUGS (1)
  1. GLEEVEC [Suspect]
     Indication: CHRONIC MYELOID LEUKAEMIA
     Route: 048
     Dates: start: 201105

REACTIONS (8)
  - Cataract [None]
  - Headache [None]
  - Pain in extremity [None]
  - Muscle spasms [None]
  - Pyrexia [None]
  - Chills [None]
  - Oropharyngeal pain [None]
  - Hypoaesthesia [None]
